FAERS Safety Report 16431445 (Version 2)
Quarter: 2019Q3

REPORT INFORMATION
  Report Type: Spontaneous
  Country: DE (occurrence: DE)
  Receive Date: 20190614
  Receipt Date: 20190725
  Transmission Date: 20191004
  Serious: Yes (Other)
  Sender: FDA-Public Use
  Company Number: PHHY2019DE135352

PATIENT
  Sex: Male

DRUGS (2)
  1. GILENYA [Suspect]
     Active Substance: FINGOLIMOD HYDROCHLORIDE
     Indication: MULTIPLE SCLEROSIS RELAPSE
     Dosage: 0.5 MG, QD
     Route: 048
     Dates: start: 20121119, end: 20180901
  2. DEKRISTOL [Concomitant]
     Active Substance: CHOLECALCIFEROL
     Indication: VITAMIN D DEFICIENCY
     Dosage: 1000 IU, QD
     Route: 048

REACTIONS (10)
  - Dysphagia [Unknown]
  - Seborrhoeic keratosis [Unknown]
  - Squamous cell carcinoma [Unknown]
  - Gastrointestinal lymphoma [Unknown]
  - Regurgitation [Unknown]
  - Emphysema [Unknown]
  - Abdominal discomfort [Unknown]
  - Nausea [Unknown]
  - Intestinal ulcer [Unknown]
  - Helicobacter gastritis [Recovered/Resolved]

NARRATIVE: CASE EVENT DATE: 201809
